FAERS Safety Report 7004185-2 (Version None)
Quarter: 2010Q3

REPORT INFORMATION
  Report Type: 
  Country: None (occurrence: None)
  Receive Date: 20100920
  Receipt Date: 20100222
  Transmission Date: 20110219
  Serious: No
  Sender: FDA-Public Use
  Company Number: US-WYE-H13770110

PATIENT
  Sex: Female

DRUGS (1)
  1. PRISTIQ [Suspect]
     Route: 048
     Dates: start: 20100121, end: 20100219

REACTIONS (6)
  - CONSTIPATION [None]
  - DECREASED APPETITE [None]
  - INCREASED APPETITE [None]
  - RASH PAPULAR [None]
  - RASH PRURITIC [None]
  - SOMNOLENCE [None]
